FAERS Safety Report 9019774 (Version 2)
Quarter: 2013Q1

REPORT INFORMATION
  Report Type: Spontaneous
  Country: GB (occurrence: GB)
  Receive Date: 20130118
  Receipt Date: 20130306
  Transmission Date: 20140127
  Serious: Yes (Other)
  Sender: FDA-Public Use
  Company Number: GB-ROCHE-1180856

PATIENT
  Sex: Female

DRUGS (10)
  1. ROACTEMRA [Suspect]
     Indication: STILL^S DISEASE ADULT ONSET
     Route: 042
     Dates: start: 200903
  2. ROACTEMRA [Suspect]
     Route: 042
     Dates: end: 20121210
  3. SULFASALAZINE [Concomitant]
     Route: 065
  4. PREDNISOLONE [Concomitant]
  5. GABAPENTIN [Concomitant]
  6. LANSOPRAZOLE [Concomitant]
  7. SIMVASTATIN [Concomitant]
  8. NAPROXEN [Concomitant]
  9. DURAGESIC PATCH [Concomitant]
  10. TRAMADOL HCL [Concomitant]

REACTIONS (2)
  - Haemolytic anaemia [Not Recovered/Not Resolved]
  - Neutropenia [Recovered/Resolved]
